FAERS Safety Report 9139109 (Version 1)
Quarter: 2013Q1

REPORT INFORMATION
  Report Type: Report from Study
  Country: US (occurrence: US)
  Receive Date: 20130305
  Receipt Date: 20130305
  Transmission Date: 20140127
  Serious: No
  Sender: FDA-Public Use
  Company Number: US-VERTEX PHARMACEUTICALS INC.-2013-000259

PATIENT
  Age: 54 Year
  Sex: Male

DRUGS (3)
  1. INCIVEK [Suspect]
     Indication: HEPATITIS C
     Dosage: DOSAGE FORM: TABLET, STOPPED 8-12 WEEKS AFTER
     Route: 048
     Dates: start: 20111028
  2. RIBAVIRIN [Concomitant]
  3. INTERFERON [Concomitant]
     Dosage: 180 MCG

REACTIONS (10)
  - Dry skin [Unknown]
  - Mood swings [Unknown]
  - Weight increased [Unknown]
  - Stomatitis [Unknown]
  - Skin lesion [Unknown]
  - Dry mouth [Unknown]
  - Anorectal discomfort [Unknown]
  - Rash [Unknown]
  - Pruritus [Unknown]
  - Anal pruritus [Unknown]
